FAERS Safety Report 10108591 (Version 1)
Quarter: 2014Q2

REPORT INFORMATION
  Report Type: Spontaneous
  Country: CA (occurrence: CA)
  Receive Date: 20140425
  Receipt Date: 20140425
  Transmission Date: 20141212
  Serious: Yes (Other)
  Sender: FDA-Public Use
  Company Number: CA-AMGEN INC.-CANSP2014028933

PATIENT
  Age: 47 Year
  Sex: Female

DRUGS (2)
  1. ENBREL [Suspect]
     Indication: PSORIASIS
     Dosage: 50 MG, 2 TIMES/WK
     Route: 065
     Dates: start: 20140305
  2. LOSEC                              /00661201/ [Concomitant]
     Dosage: UNK

REACTIONS (3)
  - Fibromyalgia [Unknown]
  - Paraesthesia [Not Recovered/Not Resolved]
  - Headache [Unknown]
